FAERS Safety Report 25259004 (Version 1)
Quarter: 2025Q2

REPORT INFORMATION
  Report Type: Spontaneous
  Country: US (occurrence: None)
  Receive Date: 20250430
  Receipt Date: 20250430
  Transmission Date: 20250717
  Serious: Yes (Death, Hospitalization)
  Sender: FDA-CTU
  Company Number: None

PATIENT
  Age: 68 Year
  Sex: Female

DRUGS (10)
  1. AMBRISENTAN [Suspect]
     Active Substance: AMBRISENTAN
     Indication: Pulmonary hypertension
     Dosage: FREQUENCY : DAILY;?
     Route: 048
     Dates: start: 20200522, end: 20250415
  2. SILDENAFIL [Suspect]
     Active Substance: SILDENAFIL
  3. FUROSEMIDE [Concomitant]
     Active Substance: FUROSEMIDE
  4. CELLCEPT [Concomitant]
     Active Substance: MYCOPHENOLATE MOFETIL
  5. RESTASIS OPHT DROPPERETTE [Concomitant]
  6. PRADAXA [Concomitant]
     Active Substance: DABIGATRAN ETEXILATE MESYLATE
  7. METHOCARBAMOL [Concomitant]
     Active Substance: METHOCARBAMOL
  8. CARVEDILOL [Concomitant]
     Active Substance: CARVEDILOL
  9. ALVESCO HFA [Concomitant]
  10. POTASSIUM CHLORIDE V [Concomitant]

REACTIONS (4)
  - Dyspnoea [None]
  - Oxygen consumption increased [None]
  - Peripheral swelling [None]
  - Chronic respiratory failure [None]

NARRATIVE: CASE EVENT DATE: 20250407
